FAERS Safety Report 7077472-X (Version None)
Quarter: 2010Q4

REPORT INFORMATION
  Report Type: 
  Country: None (occurrence: None)
  Receive Date: 20101101
  Receipt Date: 20101020
  Transmission Date: 20110411
  Serious: Yes (Hospitalization)
  Sender: FDA-Public Use
  Company Number: FR-ELI_LILLY_AND_COMPANY-FR201010004753

PATIENT
  Age: 91 Year
  Sex: Female

DRUGS (1)
  1. FORTEO [Suspect]
     Indication: OSTEOPOROSIS
     Dosage: 20 MG, DAILY (1/D)
     Dates: start: 20100415

REACTIONS (1)
  - GENERAL PHYSICAL HEALTH DETERIORATION [None]
